FAERS Safety Report 14308038 (Version 1)
Quarter: 2017Q4

REPORT INFORMATION
  Report Type: Spontaneous
  Country: US (occurrence: US)
  Receive Date: 20171219
  Receipt Date: 20171219
  Transmission Date: 20180321
  Serious: No
  Sender: FDA-Public Use
  Company Number: None

PATIENT
  Sex: Male

DRUGS (1)
  1. DAPTOMYCIN 156MG HOSPIRA [Suspect]
     Active Substance: DAPTOMYCIN
     Indication: OSTEOMYELITIS
     Route: 042
     Dates: start: 20171212

REACTIONS (4)
  - Chills [None]
  - Product substitution issue [None]
  - Body temperature decreased [None]
  - Headache [None]

NARRATIVE: CASE EVENT DATE: 20171217
